FAERS Safety Report 8606328-3 (Version None)
Quarter: 2012Q3

REPORT INFORMATION
  Report Type: 
  Country: None (occurrence: None)
  Receive Date: 20120820
  Receipt Date: 20120810
  Transmission Date: 20120928
  Serious: Yes (Hospitalization)
  Sender: FDA-Public Use
  Company Number: JP-ASTRAZENECA-2012SE15350

PATIENT
  Age: 923 Month
  Sex: Male

DRUGS (6)
  1. FAMOTIDINE [Concomitant]
     Route: 048
  2. TRICHLORMETHIAZIDE [Concomitant]
     Route: 048
  3. CANDESARTAN CILEXETIL [Suspect]
     Route: 048
  4. DEPAKENE [Concomitant]
     Route: 048
  5. DOXAZOSIN MESYLATE [Concomitant]
     Route: 048
  6. TICLOPIDINE HCL [Concomitant]
     Route: 048

REACTIONS (1)
  - OEDEMA [None]
